FAERS Safety Report 17130997 (Version 2)
Quarter: 2020Q1

REPORT INFORMATION
  Report Type: Spontaneous
  Country: IT (occurrence: IT)
  Receive Date: 20191209
  Receipt Date: 20200124
  Transmission Date: 20200409
  Serious: Yes (Death, Other)
  Sender: FDA-Public Use
  Company Number: PHHY2019IT053945

PATIENT
  Age: 69 Year
  Sex: Female

DRUGS (2)
  1. MEKINIST [Suspect]
     Active Substance: TRAMETINIB DIMETHYL SULFOXIDE
     Indication: METASTATIC MALIGNANT MELANOMA
     Dosage: 2 MG, QD
     Route: 048
     Dates: start: 20180629, end: 20190116
  2. TAFINLAR [Suspect]
     Active Substance: DABRAFENIB MESYLATE
     Indication: METASTATIC MALIGNANT MELANOMA
     Dosage: 300 MG, QD
     Route: 048
     Dates: start: 20180629, end: 20190116

REACTIONS (4)
  - Cholangitis sclerosing [Unknown]
  - Blood alkaline phosphatase increased [Fatal]
  - Gamma-glutamyltransferase increased [Fatal]
  - Biliary tract disorder [Unknown]

NARRATIVE: CASE EVENT DATE: 20190111
